FAERS Safety Report 5720796-6 (Version None)
Quarter: 2008Q2

REPORT INFORMATION
  Report Type: 
  Country: None (occurrence: None)
  Receive Date: 20080429
  Receipt Date: 20080423
  Transmission Date: 20081010
  Serious: Yes (Hospitalization, Other)
  Sender: FDA-Public Use
  Company Number: US-BAYER-200314292BWH

PATIENT
  Age: 85 Year
  Sex: Female
  Weight: 76 kg

DRUGS (20)
  1. AVELOX [Suspect]
     Indication: PNEUMONIA
     Dosage: TOTAL DAILY DOSE: 400 MG  UNIT DOSE: 400 MG
     Route: 042
     Dates: start: 20030309, end: 20030311
  2. ASPIRIN [Concomitant]
     Dates: start: 20030306, end: 20030321
  3. LIPITOR [Concomitant]
     Dates: start: 20030306, end: 20030311
  4. DIGOXIN [Concomitant]
     Dates: start: 20030306, end: 20030311
  5. RANITIDINE [Concomitant]
     Dates: start: 20030306, end: 20030313
  6. HEPARIN [Concomitant]
     Dates: start: 20030306, end: 20030311
  7. BACTROBAN [Concomitant]
     Route: 045
  8. ATROVENT [Concomitant]
  9. PROVENTIL [Concomitant]
  10. DEXAMETHASONE [Concomitant]
     Dates: start: 20030306, end: 20030313
  11. POTASSIUM CHLORIDE [Concomitant]
     Dates: start: 20030306, end: 20030311
  12. SPIRONOLACTONE [Concomitant]
     Dates: start: 20030306, end: 20030311
  13. LASIX [Concomitant]
     Dates: start: 20030306, end: 20030307
  14. FUROSEMIDE [Concomitant]
  15. COREG [Concomitant]
  16. GLYBURIDE [Concomitant]
  17. NITROGLYCERIN [Concomitant]
  18. ZAROXOLYN [Concomitant]
  19. DOBUTAMINE HCL [Concomitant]
     Dates: start: 20030306, end: 20030310
  20. NOREPINEPHRINE [Concomitant]
     Dates: start: 20030306, end: 20030311

REACTIONS (2)
  - HEPATITIS [None]
  - LIVER FUNCTION TEST ABNORMAL [None]
